FAERS Safety Report 9094427 (Version 1)
Quarter: 2013Q1

REPORT INFORMATION
  Report Type: Spontaneous
  Country: GB (occurrence: GB)
  Receive Date: 20130219
  Receipt Date: 20130219
  Transmission Date: 20140127
  Serious: Yes (Hospitalization, Other)
  Sender: FDA-Public Use
  Company Number: GB-MERCK-1302GBR004631

PATIENT
  Age: 53 Year
  Sex: Female
  Weight: 74.38 kg

DRUGS (6)
  1. LOSARTAN POTASSIUM [Suspect]
     Indication: HYPERTENSION
     Dosage: 50 MG, UNK
     Route: 048
     Dates: start: 20111001, end: 20120813
  2. AMLODIPINE [Concomitant]
  3. IBUPROFEN [Concomitant]
  4. LEVOTHYROXINE SODIUM [Concomitant]
  5. PARACETAMOL [Concomitant]
  6. SOLPADOL [Concomitant]

REACTIONS (5)
  - Dyspnoea exertional [Recovering/Resolving]
  - Loss of consciousness [Recovered/Resolved]
  - Arthritis [Unknown]
  - Pruritus generalised [Recovered/Resolved]
  - Unresponsive to stimuli [Recovered/Resolved]
